FAERS Safety Report 24655635 (Version 2)
Quarter: 2024Q4

REPORT INFORMATION
  Report Type: Spontaneous
  Country: FR (occurrence: FR)
  Receive Date: 20241123
  Receipt Date: 20241213
  Transmission Date: 20250115
  Serious: Yes (Life-Threatening, Hospitalization)
  Sender: TEVA
  Company Number: None

PATIENT
  Age: 54 Year
  Sex: Male
  Weight: 76 kg

DRUGS (3)
  1. DICLOFENAC [Suspect]
     Active Substance: DICLOFENAC
     Indication: Ligament sprain
     Route: 003
     Dates: start: 20241014, end: 20241018
  2. DICLOFENAC [Suspect]
     Active Substance: DICLOFENAC
     Indication: Ligament sprain
     Route: 048
     Dates: start: 20241018, end: 20241021
  3. PIROXICAM [Suspect]
     Active Substance: PIROXICAM
     Indication: Ligament sprain
     Route: 048
     Dates: start: 20241014, end: 20241018

REACTIONS (1)
  - Toxic epidermal necrolysis [Not Recovered/Not Resolved]

NARRATIVE: CASE EVENT DATE: 20241021
